FAERS Safety Report 8782420 (Version 1)
Quarter: 2012Q4

REPORT INFORMATION
  Report Type: 
  Country: US (occurrence: US)
  Receive Date: 20120913
  Receipt Date: 20120913
  Transmission Date: 20130627
  Serious: Yes (Hospitalization)
  Sender: FDA-Public Use
  Company Number: CHPA2012US019314

PATIENT
  Age: 52 Year
  Sex: Female

DRUGS (3)
  1. CONTROL PLP [Suspect]
     Indication: SMOKING CESSATION THERAPY
     Dosage: 14 mg, UNK
     Route: 062
     Dates: start: 2012
  2. LASIX [Suspect]
     Indication: OEDEMA PERIPHERAL
     Dosage: UNK, UNK
     Route: 048
     Dates: start: 2012, end: 2012
  3. LASIX [Suspect]
     Dosage: UNK, UNK
     Route: 048
     Dates: end: 2011

REACTIONS (1)
  - Electrolyte imbalance [Recovered/Resolved]
